FAERS Safety Report 16830601 (Version 3)
Quarter: 2020Q3

REPORT INFORMATION
  Report Type: Report from Study
  Country: FR (occurrence: FR)
  Receive Date: 20190920
  Receipt Date: 20200819
  Transmission Date: 20201102
  Serious: Yes (Hospitalization)
  Sender: FDA-Public Use
  Company Number: FR-REGENERON PHARMACEUTICALS, INC.-2019-54311

PATIENT

DRUGS (7)
  1. CEMIPLIMAB [Suspect]
     Active Substance: CEMIPLIMAB
     Indication: SQUAMOUS CELL CARCINOMA
     Dosage: 200 MG, QOW
     Route: 041
     Dates: start: 20190517, end: 20190517
  2. SINGULAIR [Concomitant]
     Active Substance: MONTELUKAST SODIUM
     Indication: SEASONAL ALLERGY
     Dosage: 1 U, QD
     Route: 065
     Dates: start: 201812
  3. DAFALGAN [Concomitant]
     Active Substance: ACETAMINOPHEN
     Indication: PAIN
     Dosage: 1 G, QD
     Route: 065
     Dates: start: 201712
  4. AERIUS                             /01009701/ [Concomitant]
     Active Substance: EBASTINE
     Indication: SEASONAL ALLERGY
     Dosage: 2 U, QD
     Route: 065
     Dates: start: 201812
  5. CEMIPLIMAB [Suspect]
     Active Substance: CEMIPLIMAB
     Indication: HEAD AND NECK CANCER
  6. OFLOCET                            /00731801/ [Concomitant]
     Active Substance: OFLOXACIN
     Indication: OTITIS MEDIA
     Dosage: 1 DROP, QD
     Route: 065
     Dates: start: 201805
  7. CEMIPLIMAB [Suspect]
     Active Substance: CEMIPLIMAB
     Indication: HEAD AND NECK CANCER
     Dosage: 200 MG, QOW
     Route: 041
     Dates: start: 20190726, end: 20190726

REACTIONS (3)
  - Tachycardia [Unknown]
  - Pulmonary embolism [Recovered/Resolved]
  - Dyspnoea [Unknown]

NARRATIVE: CASE EVENT DATE: 201908
